FAERS Safety Report 25206042 (Version 1)
Quarter: 2025Q2

REPORT INFORMATION
  Report Type: Spontaneous
  Country: AU (occurrence: AU)
  Receive Date: 20250417
  Receipt Date: 20250417
  Transmission Date: 20250716
  Serious: Yes (Hospitalization, Other)
  Sender: Alvotech
  Company Number: None

PATIENT

DRUGS (5)
  1. ADALIMUMAB [Suspect]
     Active Substance: ADALIMUMAB
     Indication: Product used for unknown indication
  2. HUMIRA [Suspect]
     Active Substance: ADALIMUMAB
     Indication: Product used for unknown indication
     Dosage: 40 MILLIGRAM, WEEKLY
  3. AZATHIOPRINE [Concomitant]
     Active Substance: AZATHIOPRINE
     Indication: Product used for unknown indication
  4. CIPROFLOXACIN [Concomitant]
     Active Substance: CIPROFLOXACIN
     Indication: Product used for unknown indication
     Dosage: 500 MILLIGRAM, BID
  5. PREDNISOLONE [Concomitant]
     Active Substance: PREDNISOLONE
     Indication: Product used for unknown indication

REACTIONS (15)
  - Pain [Unknown]
  - Swelling [Unknown]
  - Purulent discharge [Recovered/Resolved]
  - Anal fistula [Unknown]
  - Device dislocation [Unknown]
  - Sepsis [Unknown]
  - Anal abscess [Unknown]
  - Tenderness [Unknown]
  - Abnormal faeces [Recovered/Resolved]
  - Anal erythema [Recovered/Resolved]
  - Drug ineffective [Unknown]
  - Excessive granulation tissue [Unknown]
  - Induration [Recovered/Resolved]
  - Medical device site discomfort [Unknown]
  - Rectal tenesmus [Unknown]

NARRATIVE: CASE EVENT DATE: 20170101
